FAERS Safety Report 18123722 (Version 1)
Quarter: 2020Q3

REPORT INFORMATION
  Report Type: Spontaneous
  Country: US (occurrence: US)
  Receive Date: 20200806
  Receipt Date: 20200806
  Transmission Date: 20201103
  Serious: No
  Sender: FDA-Public Use
  Company Number: None

PATIENT
  Age: 64 Year
  Sex: Female

DRUGS (1)
  1. PROMACTA [Suspect]
     Active Substance: ELTROMBOPAG OLAMINE
     Route: 048
     Dates: start: 202003, end: 202008

REACTIONS (4)
  - Myalgia [None]
  - Bone pain [None]
  - Incorrect dose administered [None]
  - Arthralgia [None]

NARRATIVE: CASE EVENT DATE: 20200701
